FAERS Safety Report 12720126 (Version 2)
Quarter: 2016Q4

REPORT INFORMATION
  Report Type: Spontaneous
  Country: US (occurrence: US)
  Receive Date: 20160907
  Receipt Date: 20161005
  Transmission Date: 20170207
  Serious: No
  Sender: FDA-Public Use
  Company Number: US-PFIZER INC-2016416719

PATIENT
  Age: 55 Year
  Sex: Male
  Weight: 61 kg

DRUGS (10)
  1. EMEND [Suspect]
     Active Substance: APREPITANT
     Indication: PREMEDICATION
     Dosage: 150 MG, UNK
  2. ATROPINE SULFATE. [Concomitant]
     Active Substance: ATROPINE SULFATE
     Dosage: 150 MG, UNK
  3. OXALIPLATIN. [Suspect]
     Active Substance: OXALIPLATIN
     Indication: PANCREATIC CARCINOMA
     Dosage: 150 MG, UNK, OVER 2 HOURS
     Route: 042
     Dates: start: 20160713, end: 20160713
  4. IRINOTECAN [Concomitant]
     Active Substance: IRINOTECAN
     Dosage: 320 MG, UNK
  5. LEUCOVORIN /00566701/ [Concomitant]
     Active Substance: LEUCOVORIN
     Dosage: 710 MG, UNK
  6. FLUOROURACIL. [Concomitant]
     Active Substance: FLUOROURACIL
     Dosage: 4250 MG, UNK
     Route: 041
  7. FOSAPREPITANT [Concomitant]
     Active Substance: FOSAPREPITANT
     Dosage: 150 MG, UNK (30 MINUTES)
  8. ALOXI [Concomitant]
     Active Substance: PALONOSETRON HYDROCHLORIDE
     Indication: PREMEDICATION
     Dosage: 0.25 MG, (FOR 30 SECONDS)
  9. DECADRON [Concomitant]
     Active Substance: DEXAMETHASONE
     Indication: PREMEDICATION
     Dosage: 12 MG, (FOR 15 MINUTES)
  10. FLUOROURACIL. [Concomitant]
     Active Substance: FLUOROURACIL
     Dosage: 710 MG, UNK
     Route: 040

REACTIONS (5)
  - Tongue disorder [Recovered/Resolved]
  - Muscular weakness [Recovered/Resolved]
  - Product use issue [Unknown]
  - Feeling abnormal [Recovered/Resolved]
  - Dysarthria [Recovered/Resolved]

NARRATIVE: CASE EVENT DATE: 20160713
